FAERS Safety Report 13610219 (Version 1)
Quarter: 2017Q2

REPORT INFORMATION
  Report Type: Report from Study
  Country: None (occurrence: DE)
  Receive Date: 20170604
  Receipt Date: 20170604
  Transmission Date: 20170830
  Serious: Yes (Hospitalization)
  Sender: FDA-Public Use
  Company Number: DE-ABBVIE-17K-062-1995989-00

PATIENT
  Sex: Female

DRUGS (1)
  1. DUODOPA [Suspect]
     Active Substance: CARBIDOPA\LEVODOPA
     Indication: PARKINSON^S DISEASE
     Dosage: LAST REPORTED DOSE:MD 9.4ML,CRD 3.2ML/H,ED 1.8ML
     Route: 050
     Dates: start: 20120808

REACTIONS (1)
  - Staphylococcal infection [Unknown]
